FAERS Safety Report 22538275 (Version 1)
Quarter: 2023Q2

REPORT INFORMATION
  Report Type: Report from Study
  Country: US (occurrence: US)
  Receive Date: 20230609
  Receipt Date: 20230609
  Transmission Date: 20230722
  Serious: Yes (Other)
  Sender: FDA-Public Use
  Company Number: US-ABBVIE-5279238

PATIENT
  Age: 58 Year
  Sex: Female

DRUGS (1)
  1. SKYRIZI [Suspect]
     Active Substance: RISANKIZUMAB-RZAA
     Indication: Product used for unknown indication
     Dosage: 2022
     Route: 058
     Dates: start: 20220301

REACTIONS (7)
  - Arthrodesis [Recovering/Resolving]
  - Psoriasis [Not Recovered/Not Resolved]
  - Skin ulcer [Unknown]
  - Psoriatic arthropathy [Not Recovered/Not Resolved]
  - Spinal fracture [Unknown]
  - Fall [Unknown]
  - Impaired healing [Unknown]

NARRATIVE: CASE EVENT DATE: 20220614
